FAERS Safety Report 9798772 (Version 2)
Quarter: 2014Q1

REPORT INFORMATION
  Report Type: Spontaneous
  Country: US (occurrence: US)
  Receive Date: 20140106
  Receipt Date: 20140106
  Transmission Date: 20141002
  Serious: No
  Sender: FDA-Public Use
  Company Number: US-GILEAD-2010-0029909

PATIENT
  Age: 80 Year
  Sex: Male

DRUGS (10)
  1. LETAIRIS [Suspect]
     Indication: PULMONARY ARTERIAL HYPERTENSION
     Route: 048
  2. REVATIO [Concomitant]
     Indication: PULMONARY HYPERTENSION
     Dates: start: 20100406, end: 20100518
  3. COUMADIN [Concomitant]
  4. LASIX [Concomitant]
  5. LISINOPRIL [Concomitant]
  6. LIPITOR [Concomitant]
  7. ADVAIR DISKUS [Concomitant]
  8. SPIRIVA [Concomitant]
  9. HYDROMORPHONE [Concomitant]
  10. POTASSIUM [Concomitant]

REACTIONS (3)
  - Cough [Recovered/Resolved]
  - Abdominal discomfort [Recovered/Resolved]
  - Local swelling [Recovered/Resolved]
